FAERS Safety Report 7921187-X (Version None)
Quarter: 2011Q4

REPORT INFORMATION
  Report Type: 
  Country: None (occurrence: None)
  Receive Date: 20111117
  Receipt Date: 20111116
  Transmission Date: 20120403
  Serious: Yes (Death, Hospitalization)
  Sender: FDA-Public Use
  Company Number: US-B.I. PHARMACEUTICALS,INC./RIDGEFIELD-2011-BP-09577BP

PATIENT
  Sex: Male

DRUGS (8)
  1. ALDACTONE [Concomitant]
  2. LISINOPRIL [Concomitant]
  3. PLAVIX [Concomitant]
  4. PEPCID [Concomitant]
  5. FLOMAX [Concomitant]
  6. ZOCOR [Concomitant]
  7. PRADAXA [Suspect]
     Indication: ATRIAL FIBRILLATION
     Dosage: 300 MG
     Route: 048
     Dates: start: 20110301
  8. ASPIRIN [Concomitant]

REACTIONS (11)
  - COAGULOPATHY [None]
  - ENCEPHALOPATHY [None]
  - ANAEMIA [None]
  - SWELLING [None]
  - DYSPEPSIA [None]
  - ISCHAEMIC CARDIOMYOPATHY [None]
  - CORONARY ARTERY DISEASE [None]
  - CONTUSION [None]
  - RECTAL HAEMORRHAGE [None]
  - CARDIOGENIC SHOCK [None]
  - HAEMORRHAGE [None]
